FAERS Safety Report 25873512 (Version 2)
Quarter: 2025Q4

REPORT INFORMATION
  Report Type: Spontaneous
  Country: US (occurrence: US)
  Receive Date: 20251002
  Receipt Date: 20251015
  Transmission Date: 20260117
  Serious: Yes (Other)
  Sender: NOVO NORDISK
  Company Number: US-NOVOPROD-1532450

PATIENT
  Age: 50 Year
  Sex: Male
  Weight: 109 kg

DRUGS (1)
  1. OZEMPIC [Suspect]
     Active Substance: SEMAGLUTIDE
     Indication: Type 2 diabetes mellitus
     Dosage: 1 MG, QW
     Route: 058
     Dates: start: 202412

REACTIONS (4)
  - Pruritus genital [Not Recovered/Not Resolved]
  - Scrotal erythema [Not Recovered/Not Resolved]
  - Scrotal swelling [Not Recovered/Not Resolved]
  - Scrotal dermatitis [Not Recovered/Not Resolved]

NARRATIVE: CASE EVENT DATE: 20250701
